FAERS Safety Report 21445135 (Version 1)
Quarter: 2022Q4

REPORT INFORMATION
  Report Type: Spontaneous
  Country: GR (occurrence: None)
  Receive Date: 20221012
  Receipt Date: 20221012
  Transmission Date: 20230113
  Serious: Yes (Other)
  Sender: FDA-Public Use
  Company Number: 2022A336639

PATIENT
  Age: 55 Year
  Sex: Male

DRUGS (3)
  1. CRESTOR [Suspect]
     Active Substance: ROSUVASTATIN CALCIUM
     Indication: Type V hyperlipidaemia
     Dosage: 40 MG ONCE A DAY
     Route: 048
     Dates: start: 20210512, end: 20210705
  2. CRESTOR [Suspect]
     Active Substance: ROSUVASTATIN CALCIUM
     Dosage: 20 MG ONCE A DAY
     Route: 048
     Dates: end: 20210727
  3. ASPIRIN\ATORVASTATIN CALCIUM\RAMIPRIL [Suspect]
     Active Substance: ASPIRIN\ATORVASTATIN CALCIUM\RAMIPRIL
     Dosage: 20 MG ONCE A DAY
     Route: 048
     Dates: end: 20210930

REACTIONS (3)
  - Drug intolerance [Recovered/Resolved]
  - Myalgia [Recovered/Resolved]
  - Myopathy [Recovered/Resolved]

NARRATIVE: CASE EVENT DATE: 20210512
